FAERS Safety Report 9019385 (Version 1)
Quarter: 2013Q1

REPORT INFORMATION
  Report Type: Spontaneous
  Country: US (occurrence: US)
  Receive Date: 20130118
  Receipt Date: 20130118
  Transmission Date: 20140127
  Serious: Yes (Hospitalization)
  Sender: FDA-Public Use
  Company Number: US-ELI_LILLY_AND_COMPANY-US201301002408

PATIENT
  Age: 55 None
  Sex: Male

DRUGS (1)
  1. FORTEO [Suspect]
     Dosage: UNK, QD
     Dates: start: 20120401

REACTIONS (1)
  - Chronic obstructive pulmonary disease [Unknown]
